FAERS Safety Report 4888109-X (Version None)
Quarter: 2006Q1

REPORT INFORMATION
  Report Type: 
  Country: None (occurrence: None)
  Receive Date: 20060123
  Receipt Date: 20060109
  Transmission Date: 20060701
  Serious: Yes (Life-Threatening, Hospitalization, Other)
  Sender: FDA-Public Use
  Company Number: JP-JNJFOC-20031203942

PATIENT
  Sex: Female
  Weight: 12 kg

DRUGS (36)
  1. REMICADE [Suspect]
     Route: 042
  2. REMICADE [Suspect]
     Route: 042
  3. REMICADE [Suspect]
     Route: 042
  4. REMICADE [Suspect]
     Route: 042
  5. REMICADE [Suspect]
     Route: 042
  6. REMICADE [Suspect]
     Route: 042
  7. REMICADE [Suspect]
     Route: 042
  8. REMICADE [Suspect]
     Route: 042
  9. REMICADE [Suspect]
     Route: 042
  10. REMICADE [Suspect]
     Route: 042
  11. REMICADE [Suspect]
     Route: 042
  12. REMICADE [Suspect]
     Route: 042
  13. REMICADE [Suspect]
     Route: 042
  14. REMICADE [Suspect]
     Route: 042
  15. REMICADE [Suspect]
     Route: 042
  16. REMICADE [Suspect]
     Route: 042
  17. REMICADE [Suspect]
     Route: 042
  18. REMICADE [Suspect]
     Dosage: 5 MG/KG
     Route: 042
  19. REMICADE [Suspect]
     Dosage: 5 MG/KG
     Route: 042
  20. REMICADE [Suspect]
     Indication: CROHN'S DISEASE
     Dosage: 1ST DOSE, 5MG/KG
     Route: 042
  21. PREDONINE [Suspect]
     Route: 048
  22. PREDONINE [Suspect]
     Route: 048
  23. PREDONINE [Suspect]
     Route: 048
  24. PREDONINE [Suspect]
     Route: 048
  25. PREDONINE [Suspect]
     Indication: CROHN'S DISEASE
     Route: 048
  26. LEUKERIN [Suspect]
     Indication: CROHN'S DISEASE
     Route: 048
  27. SALAZOPYRIN [Concomitant]
     Route: 048
  28. GASTER [Concomitant]
     Route: 048
  29. SELBEX [Concomitant]
     Route: 048
  30. MIYA-BM [Concomitant]
     Indication: PROPHYLAXIS
     Route: 048
  31. ALFAROL [Concomitant]
     Indication: OSTEOPOROSIS PROPHYLAXIS
     Route: 048
  32. FERROMIA [Concomitant]
     Indication: IRON DEFICIENCY
     Route: 048
  33. BACTAR [Concomitant]
     Route: 048
  34. BACTAR [Concomitant]
     Indication: INFECTION PROPHYLAXIS
     Route: 048
  35. COLCHICINE [Concomitant]
     Route: 048
  36. COLCHICINE [Concomitant]
     Route: 048

REACTIONS (6)
  - ACETONAEMIC VOMITING [None]
  - BLISTER [None]
  - DEPRESSED LEVEL OF CONSCIOUSNESS [None]
  - HERPES ZOSTER [None]
  - RASH [None]
  - VARICELLA [None]
